FAERS Safety Report 23270323 (Version 1)
Quarter: 2023Q4

REPORT INFORMATION
  Report Type: Other
  Country: CN (occurrence: None)
  Receive Date: 20231207
  Receipt Date: 20231207
  Transmission Date: 20240109
  Serious: Yes (Hospitalization)
  Sender: FDA-Public Use
  Company Number: CN-ROCHE-3468678

PATIENT
  Age: 42 Year
  Sex: Male

DRUGS (1)
  1. OBINUTUZUMAB [Suspect]
     Active Substance: OBINUTUZUMAB
     Indication: Immune thrombocytopenia
     Route: 042
     Dates: start: 20221118

REACTIONS (1)
  - COVID-19 [Recovering/Resolving]
